FAERS Safety Report 5362948-3 (Version None)
Quarter: 2007Q2

REPORT INFORMATION
  Report Type: 
  Country: None (occurrence: None)
  Receive Date: 20070615
  Receipt Date: 20070530
  Transmission Date: 20071010
  Serious: Yes (Hospitalization)
  Sender: FDA-Public Use
  Company Number: 8024283

PATIENT
  Age: 44 Year
  Sex: Male
  Weight: 56.6 kg

DRUGS (7)
  1. KEPPRA [Suspect]
     Indication: CONVULSION
     Dosage: 500 MG 2/D PO
     Route: 048
     Dates: start: 20070428
  2. BACTRIM DS [Concomitant]
  3. PROSCAR [Concomitant]
  4. DIPYRIDAMOLE [Concomitant]
  5. SEROQUEL [Concomitant]
  6. FLOMAX [Concomitant]
  7. CRESTOR [Concomitant]

REACTIONS (5)
  - GLUCOSE URINE PRESENT [None]
  - HAEMATOCRIT DECREASED [None]
  - HAEMOGLOBIN DECREASED [None]
  - HYPOGLYCAEMIA [None]
  - WHITE BLOOD CELL COUNT DECREASED [None]
